FAERS Safety Report 13881834 (Version 3)
Quarter: 2017Q3

REPORT INFORMATION
  Report Type: Spontaneous
  Country: BR (occurrence: BR)
  Receive Date: 20170818
  Receipt Date: 20170907
  Transmission Date: 20171127
  Serious: Yes (Death, Other)
  Sender: FDA-Public Use
  Company Number: PHHY2017BR121735

PATIENT
  Age: 59 Year
  Sex: Female
  Weight: 70 kg

DRUGS (1)
  1. VOTRIENT [Suspect]
     Active Substance: PAZOPANIB HYDROCHLORIDE
     Indication: PRODUCT USED FOR UNKNOWN INDICATION
     Dosage: UNK
     Route: 065

REACTIONS (7)
  - Abdominal distension [Not Recovered/Not Resolved]
  - Multiple organ dysfunction syndrome [Unknown]
  - Respiratory failure [Fatal]
  - Disease progression [Fatal]
  - Metastasis [Unknown]
  - Acute abdomen [Fatal]
  - Metastases to peritoneum [Fatal]

NARRATIVE: CASE EVENT DATE: 20170706
